FAERS Safety Report 9500603 (Version 1)
Quarter: 2013Q3

REPORT INFORMATION
  Report Type: Spontaneous
  Country: US (occurrence: US)
  Receive Date: 20130905
  Receipt Date: 20130905
  Transmission Date: 20140515
  Serious: Yes (Hospitalization)
  Sender: FDA-Public Use
  Company Number: US-COVIDIEN/TYCO HEALTHCARE/MALLINCKRODT-T201304243

PATIENT
  Sex: Female

DRUGS (1)
  1. GABLOFEN [Suspect]
     Indication: MUSCLE SPASTICITY
     Dosage: 1692 MCG/DAY
     Route: 037

REACTIONS (5)
  - Drug administration error [Recovering/Resolving]
  - Convulsion [Recovering/Resolving]
  - Drug withdrawal syndrome [Recovering/Resolving]
  - Pain [Recovering/Resolving]
  - Muscle rigidity [Recovering/Resolving]
